FAERS Safety Report 8855849 (Version 1)
Quarter: 2012Q4

REPORT INFORMATION
  Report Type: 
  Country: US (occurrence: US)
  Receive Date: 20121023
  Receipt Date: 20121023
  Transmission Date: 20130627
  Serious: No
  Sender: FDA-Public Use
  Company Number: US-AMGEN-USASP2012058768

PATIENT
  Age: 63 Year
  Sex: Female
  Weight: 73 kg

DRUGS (15)
  1. ENBREL [Suspect]
     Indication: PRODUCT USED FOR UNKNOWN INDICATION
     Dosage: 50 mg, qwk
     Route: 058
  2. METHOTREXATE [Concomitant]
     Dosage: UNK
     Route: 048
  3. FOLIC ACID [Concomitant]
     Dosage: UNK
     Route: 048
  4. POTASSIUM [Concomitant]
     Route: 048
  5. LISINOPRIL [Concomitant]
     Route: 048
  6. PREMARIN [Concomitant]
     Route: 048
  7. ASPIRIN [Concomitant]
     Dosage: 81 mg, UNK
     Route: 048
  8. PLAQUENIL                          /00072602/ [Concomitant]
     Dosage: 200 mg, UNK
     Route: 048
  9. KLOR-CON M20 [Concomitant]
     Route: 048
  10. ATENOLOL [Concomitant]
     Dosage: 50 mg, UNK
     Route: 048
  11. CELEBREX [Concomitant]
     Dosage: 100 mg, UNK
     Route: 048
  12. SLOW MAG [Concomitant]
     Route: 048
  13. CALCIUM + VITAMIN D                /01483701/ [Concomitant]
     Route: 048
  14. TYLENOL ARTHRITIS [Concomitant]
     Dosage: 650 mg, UNK
     Route: 048
  15. LISINOPRIL + HIDROCLOROTIAZIDA [Concomitant]
     Dosage: UNK
     Route: 048

REACTIONS (1)
  - Tachycardia [Unknown]
